FAERS Safety Report 6456420-7 (Version None)
Quarter: 2009Q4

REPORT INFORMATION
  Report Type: 
  Country: None (occurrence: None)
  Receive Date: 20091125
  Receipt Date: 20091117
  Transmission Date: 20100525
  Serious: Yes (Other)
  Sender: FDA-Public Use
  Company Number: GB-AMGEN-US375005

PATIENT
  Sex: Female
  Weight: 78 kg

DRUGS (3)
  1. ENBREL [Suspect]
     Indication: RHEUMATOID ARTHRITIS
     Route: 058
     Dates: end: 20091106
  2. LOSARTAN [Concomitant]
     Indication: HYPERTENSION
     Dosage: 10 MG, FREQUENCY UNKNOWN
     Route: 048
  3. METHOTREXATE [Concomitant]
     Indication: RHEUMATOID ARTHRITIS
     Route: 058

REACTIONS (2)
  - CONTUSION [None]
  - INJECTION SITE URTICARIA [None]
